FAERS Safety Report 5615185-9 (Version None)
Quarter: 2008Q1

REPORT INFORMATION
  Report Type: 
  Country: None (occurrence: None)
  Receive Date: 20080206
  Receipt Date: 20080131
  Transmission Date: 20080703
  Serious: Yes (Hospitalization, Other)
  Sender: FDA-Public Use
  Company Number: JP-BAYER-200810006BYL

PATIENT
  Age: 83 Year
  Sex: Female
  Weight: 57 kg

DRUGS (7)
  1. RIVAROXABAN OD PO OR WAFARIN OD [Suspect]
     Indication: CEREBROVASCULAR ACCIDENT PROPHYLAXIS
     Route: 048
     Dates: start: 20070806
  2. CIPROXAN-I.V. [Suspect]
     Indication: PNEUMONIA
     Dosage: TOTAL DAILY DOSE: 600 MG
     Route: 041
     Dates: start: 20071229, end: 20080108
  3. ADALAT [Concomitant]
     Indication: HYPERTENSION
     Dosage: TOTAL DAILY DOSE: 40 MG
     Route: 048
     Dates: start: 20060125
  4. ARTIST [Concomitant]
     Indication: HYPERTENSION
     Dosage: TOTAL DAILY DOSE: 10 MG
     Route: 048
     Dates: start: 20060125
  5. SONACON [Concomitant]
     Indication: INSOMNIA
     Dosage: TOTAL DAILY DOSE: 2 MG
     Route: 048
     Dates: start: 20060125
  6. ARICEPT [Concomitant]
     Indication: DEMENTIA
     Dosage: TOTAL DAILY DOSE: 5 MG
     Route: 048
     Dates: start: 20060222
  7. ASPIRIN [Concomitant]
     Indication: PROPHYLAXIS
     Dosage: TOTAL DAILY DOSE: 100 MG  UNIT DOSE: 100 MG
     Route: 048
     Dates: start: 20071219

REACTIONS (4)
  - CONVULSION [None]
  - HEMIPLEGIA [None]
  - HYPOAESTHESIA [None]
  - PNEUMONIA [None]
